FAERS Safety Report 14700622 (Version 1)
Quarter: 2018Q1

REPORT INFORMATION
  Report Type: Spontaneous
  Country: JP (occurrence: JP)
  Receive Date: 20180330
  Receipt Date: 20180330
  Transmission Date: 20180509
  Serious: Yes (Other)
  Sender: FDA-Public Use
  Company Number: JP-AMGEN-JPNSP2018042897

PATIENT

DRUGS (1)
  1. GRAN [Suspect]
     Active Substance: FILGRASTIM
     Indication: PRODUCT USED FOR UNKNOWN INDICATION
     Dosage: UNK
     Route: 065

REACTIONS (14)
  - Hypokalaemia [Unknown]
  - Nausea [Unknown]
  - Stomatitis [Unknown]
  - Oropharyngeal pain [Unknown]
  - Blood creatine increased [Unknown]
  - Hypoalbuminaemia [Unknown]
  - Hypocalcaemia [Unknown]
  - Pyrexia [Unknown]
  - Back pain [Unknown]
  - Headache [Unknown]
  - Dizziness [Unknown]
  - Dysgeusia [Unknown]
  - Vomiting [Unknown]
  - Diarrhoea [Unknown]
